FAERS Safety Report 8063813-3 (Version None)
Quarter: 2012Q1

REPORT INFORMATION
  Report Type: 
  Country: None (occurrence: None)
  Receive Date: 20120123
  Receipt Date: 20120113
  Transmission Date: 20120608
  Serious: Yes (Other)
  Sender: FDA-Public Use
  Company Number: US-BAYER-2012-000132

PATIENT
  Sex: Female

DRUGS (3)
  1. YASMIN [Suspect]
     Dosage: UNK
     Dates: start: 20040201, end: 20080101
  2. PREMPRO [Concomitant]
     Dosage: UNK
     Dates: start: 20090101
  3. YAZ [Suspect]
     Dosage: UNK
     Dates: start: 20080101, end: 20090301

REACTIONS (3)
  - GALLBLADDER DISORDER [None]
  - PAIN [None]
  - DEPRESSION [None]
